FAERS Safety Report 8325369-7 (Version None)
Quarter: 2012Q2

REPORT INFORMATION
  Report Type: 
  Country: None (occurrence: None)
  Receive Date: 20120501
  Receipt Date: 20100409
  Transmission Date: 20120825
  Serious: No
  Sender: FDA-Public Use
  Company Number: US-TEVA-2010002134

PATIENT
  Age: 45 Year
  Sex: Male
  Weight: 77.18 kg

DRUGS (4)
  1. NUVIGIL [Suspect]
     Indication: SLEEP APNOEA SYNDROME
     Route: 048
     Dates: start: 20091201
  2. CLONAZEPAM [Concomitant]
     Indication: ANXIETY
     Dates: start: 20020101
  3. WELLBUTRIN [Concomitant]
     Indication: DEPRESSION
     Dates: start: 20020101
  4. PROVIGIL [Suspect]
     Indication: SLEEP APNOEA SYNDROME
     Route: 048
     Dates: start: 20080101, end: 20091201

REACTIONS (2)
  - ALOPECIA [None]
  - HYPERTENSION [None]
